FAERS Safety Report 14703004 (Version 2)
Quarter: 2018Q2

REPORT INFORMATION
  Report Type: Spontaneous
  Country: US (occurrence: US)
  Receive Date: 20180402
  Receipt Date: 20180405
  Transmission Date: 20180711
  Serious: No
  Sender: FDA-Public Use
  Company Number: US-JNJFOC-20180327254

PATIENT
  Sex: Female
  Weight: 64.41 kg

DRUGS (1)
  1. SIMPONI [Suspect]
     Active Substance: GOLIMUMAB
     Indication: RHEUMATOID ARTHRITIS
     Route: 058
     Dates: start: 201701

REACTIONS (4)
  - Therapeutic response decreased [Unknown]
  - Heart rate increased [Recovered/Resolved]
  - Inappropriate schedule of drug administration [Unknown]
  - Flushing [Recovered/Resolved]
